FAERS Safety Report 8909701 (Version 1)
Quarter: 2012Q4

REPORT INFORMATION
  Report Type: Spontaneous
  Country: US (occurrence: None)
  Receive Date: 20121109
  Receipt Date: 20121109
  Transmission Date: 20130627
  Serious: Yes (Other)
  Sender: FDA-Public Use
  Company Number: HA12-296-AE

PATIENT
  Age: 75 Year
  Sex: Male
  Weight: 98.43 kg

DRUGS (7)
  1. SMZ / TMP [Suspect]
     Dosage: for about 6 weeks
     Route: 048
     Dates: end: 20121016
  2. REVILIMID (CELGENE) [Concomitant]
  3. ATENOLOL [Concomitant]
  4. LISINOPRIL [Concomitant]
  5. HYDROCHLOROTHIAZIDE [Concomitant]
  6. OMEPRAZOLE [Concomitant]
  7. PREDNISONE [Concomitant]

REACTIONS (6)
  - Dysphonia [None]
  - Vocal cord disorder [None]
  - Rash erythematous [None]
  - Rash pruritic [None]
  - Rash generalised [None]
  - Haemoglobin decreased [None]
